FAERS Safety Report 4709130-8 (Version None)
Quarter: 2005Q3

REPORT INFORMATION
  Report Type: 
  Country: None (occurrence: None)
  Receive Date: 20050705
  Receipt Date: 20050622
  Transmission Date: 20060218
  Serious: Yes (Hospitalization)
  Sender: FDA-Public Use
  Company Number: 200511220BWH

PATIENT
  Age: 50 Year
  Sex: Male

DRUGS (2)
  1. CIPRO [Suspect]
     Indication: DIABETIC FOOT
     Dosage: 750 MG, BID, ORAL
     Route: 048
     Dates: start: 19990405
  2. CIPRO IV [Suspect]
     Dosage: INTRAVENOUS
     Route: 042

REACTIONS (2)
  - DRUG INEFFECTIVE [None]
  - LEG AMPUTATION [None]
